FAERS Safety Report 4364813-7 (Version None)
Quarter: 2004Q2

REPORT INFORMATION
  Report Type: 
  Country: None (occurrence: None)
  Receive Date: 20040521
  Receipt Date: 20040517
  Transmission Date: 20050107
  Serious: Yes (Death, Life-Threatening, Hospitalization, Disabling)
  Sender: FDA-Public Use
  Company Number: 2004-05-0021

PATIENT
  Age: 58 Year
  Sex: Female
  Weight: 66 kg

DRUGS (5)
  1. PEG-INTRON [Suspect]
     Indication: HEPATITIS C
     Dosage: 100-80 MCG SUBCUTANEOUS
     Route: 058
     Dates: start: 20031213, end: 20040109
  2. PEG-INTRON [Suspect]
     Indication: HEPATITIS C
     Dosage: 100-80 MCG SUBCUTANEOUS
     Route: 058
     Dates: start: 20040110, end: 20040305
  3. PEG-INTRON [Suspect]
     Indication: HEPATITIS C
     Dosage: 100-80 MCG SUBCUTANEOUS
     Route: 058
     Dates: start: 20040306, end: 20040309
  4. PEG-INTRON [Suspect]
     Indication: HEPATITIS C
     Dosage: 100-80 MCG SUBCUTANEOUS
     Route: 058
     Dates: start: 20040403, end: 20040420
  5. RIBAVIRIN [Suspect]
     Indication: HEPATITIS C
     Dosage: 1000 MG QD ORAL
     Route: 048
     Dates: start: 20031213, end: 20040422

REACTIONS (9)
  - ACUTE RESPIRATORY DISTRESS SYNDROME [None]
  - COUGH [None]
  - DISSEMINATED INTRAVASCULAR COAGULATION [None]
  - GENERAL PHYSICAL HEALTH DETERIORATION [None]
  - PLATELET COUNT DECREASED [None]
  - PYREXIA [None]
  - RENAL FAILURE [None]
  - SEPSIS [None]
  - WHITE BLOOD CELL COUNT DECREASED [None]
